FAERS Safety Report 4633154-2 (Version None)
Quarter: 2005Q2

REPORT INFORMATION
  Report Type: 
  Country: None (occurrence: None)
  Receive Date: 20050412
  Receipt Date: 20050313
  Transmission Date: 20051028
  Serious: Yes (Other)
  Sender: FDA-Public Use
  Company Number: US-JNJFOC-20050305111

PATIENT
  Sex: Female
  Weight: 9.07 kg

DRUGS (2)
  1. TYLENOL (CAPLET) [Suspect]
     Route: 049
  2. TYLENOL (CAPLET) [Suspect]
     Route: 049

REACTIONS (4)
  - EYE DISORDER [None]
  - FEELING ABNORMAL [None]
  - MOVEMENT DISORDER [None]
  - TARDIVE DYSKINESIA [None]
